FAERS Safety Report 16094252 (Version 1)
Quarter: 2019Q1

REPORT INFORMATION
  Report Type: Spontaneous
  Country: FR (occurrence: FR)
  Receive Date: 20190320
  Receipt Date: 20190320
  Transmission Date: 20190418
  Serious: Yes (Life-Threatening)
  Sender: FDA-Public Use
  Company Number: FR-ACCORD-113859

PATIENT
  Age: 54 Year
  Sex: Female

DRUGS (11)
  1. RITUXIMAB. [Suspect]
     Active Substance: RITUXIMAB
     Indication: EPSTEIN-BARR VIRUS INFECTION
     Dosage: INCONNUE
     Route: 042
     Dates: start: 20110331, end: 20110421
  2. FLUDARABINE/FLUDARABINE PHOSPHATE [Suspect]
     Active Substance: FLUDARABINE PHOSPHATE
     Indication: ACUTE MYELOID LEUKAEMIA
     Route: 042
     Dates: start: 20110216, end: 20110219
  3. AMSACRINE [Suspect]
     Active Substance: AMSACRINE
     Indication: ACUTE MYELOID LEUKAEMIA
     Route: 042
     Dates: start: 20101027, end: 20110219
  4. CORTANCYL [Suspect]
     Active Substance: PREDNISONE
     Indication: CHRONIC GRAFT VERSUS HOST DISEASE
     Route: 048
     Dates: start: 20130513
  5. CICLOSPORIN [Suspect]
     Active Substance: CYCLOSPORINE
     Indication: PROPHYLAXIS
     Route: 048
     Dates: start: 201103, end: 20110616
  6. GRANOCYTE [Suspect]
     Active Substance: LENOGRASTIM
     Indication: PROPHYLAXIS
     Route: 051
     Dates: start: 20100906, end: 201010
  7. CYTARABINE/CYTARABINE HYDROCHLORIDE/CYTARABINE OCFOSFATE [Suspect]
     Active Substance: CYTARABINE
     Indication: ACUTE MYELOID LEUKAEMIA
     Route: 042
     Dates: start: 20100817, end: 20110219
  8. MYCOPHENOLIC ACID. [Suspect]
     Active Substance: MYCOPHENOLIC ACID
     Indication: TRANSPLANT
     Route: 048
     Dates: start: 201103, end: 20110411
  9. DAUNORUBICIN [Suspect]
     Active Substance: DAUNORUBICIN
     Indication: ACUTE MYELOID LEUKAEMIA
     Route: 042
     Dates: start: 20100817, end: 20100819
  10. BUSULFAN. [Suspect]
     Active Substance: BUSULFAN
     Indication: ACUTE MYELOID LEUKAEMIA
     Route: 042
     Dates: start: 20110210, end: 20110212
  11. ANTITHYMOCYTE IMMUNOGLOBULIN [Suspect]
     Active Substance: THYMOCYTE IMMUNE GLOBULIN NOS
     Indication: ACUTE MYELOID LEUKAEMIA
     Dosage: STRENGTH: 5 MG / ML POWDER FOR SOLUTION FOR INFUSION
     Route: 042
     Dates: start: 20110227, end: 20110301

REACTIONS (1)
  - Acute promyelocytic leukaemia [Recovered/Resolved]

NARRATIVE: CASE EVENT DATE: 201410
